FAERS Safety Report 26033134 (Version 1)
Quarter: 2025Q4

REPORT INFORMATION
  Report Type: Spontaneous
  Country: EU (occurrence: EU)
  Receive Date: 20251112
  Receipt Date: 20251112
  Transmission Date: 20260118
  Serious: Yes (Hospitalization, Other)
  Sender: ALEXION PHARMACEUTICALS
  Company Number: EU-AstraZeneca-CH-00795962A

PATIENT
  Age: 81 Year
  Sex: Male

DRUGS (2)
  1. TEZSPIRE [Suspect]
     Active Substance: TEZEPELUMAB-EKKO
     Indication: Asthma
     Dosage: UNK
     Route: 065
  2. TEZSPIRE [Suspect]
     Active Substance: TEZEPELUMAB-EKKO

REACTIONS (3)
  - Myocardial infarction [Recovered/Resolved with Sequelae]
  - Asthenia [Unknown]
  - Dry throat [Unknown]
